FAERS Safety Report 14668963 (Version 1)
Quarter: 2018Q1

REPORT INFORMATION
  Report Type: Spontaneous
  Country: US (occurrence: US)
  Receive Date: 20180321
  Receipt Date: 20180321
  Transmission Date: 20180509
  Serious: Yes (Disabling)
  Sender: FDA-Public Use
  Company Number: None

PATIENT
  Age: 41 Year
  Sex: Female
  Weight: 67.5 kg

DRUGS (10)
  1. NEURONTIN [Concomitant]
     Active Substance: GABAPENTIN
  2. MOTRIN [Concomitant]
     Active Substance: IBUPROFEN
  3. GUMMY VITAMIN [Concomitant]
  4. TOPAMAX [Concomitant]
     Active Substance: TOPIRAMATE
  5. LAMICTAL [Concomitant]
     Active Substance: LAMOTRIGINE
  6. NORCO [Concomitant]
     Active Substance: ACETAMINOPHEN\HYDROCODONE BITARTRATE
  7. CRESTOR [Suspect]
     Active Substance: ROSUVASTATIN CALCIUM
     Indication: BLOOD CHOLESTEROL INCREASED
     Route: 048
  8. ADDERALL [Concomitant]
     Active Substance: AMPHETAMINE ASPARTATE\AMPHETAMINE SULFATE\DEXTROAMPHETAMINE SACCHARATE\DEXTROAMPHETAMINE SULFATE
  9. VITAMIN D3 [Concomitant]
     Active Substance: CHOLECALCIFEROL
  10. MORPHINE [Concomitant]
     Active Substance: MORPHINE

REACTIONS (6)
  - Anger [None]
  - Muscle injury [None]
  - Pruritus [None]
  - Myalgia [None]
  - Neuropathy peripheral [None]
  - Mobility decreased [None]

NARRATIVE: CASE EVENT DATE: 20101201
